FAERS Safety Report 12400734 (Version 1)
Quarter: 2016Q2

REPORT INFORMATION
  Report Type: Spontaneous
  Country: US (occurrence: None)
  Receive Date: 20160524
  Receipt Date: 20160524
  Transmission Date: 20160815
  Serious: Yes (Hospitalization)
  Sender: FDA-Public Use
  Company Number: None

PATIENT
  Age: 28 Year
  Sex: Female

DRUGS (3)
  1. SCOPOLAMINE [Concomitant]
     Active Substance: SCOPOLAMINE
  2. OCTREOTIDE 200MCG/ML [Suspect]
     Active Substance: OCTREOTIDE
     Indication: MULTIPLE SCLEROSIS
     Dates: start: 201604
  3. FENTANYL. [Concomitant]
     Active Substance: FENTANYL

REACTIONS (1)
  - Hospitalisation [None]

NARRATIVE: CASE EVENT DATE: 2016
